FAERS Safety Report 17525589 (Version 3)
Quarter: 2020Q3

REPORT INFORMATION
  Report Type: Not Available
  Country: US (occurrence: US)
  Receive Date: 20200310
  Receipt Date: 20200807
  Transmission Date: 20201102
  Serious: Yes (Hospitalization)
  Sender: FDA-Public Use
  Company Number: US-NEUROCRINE BIOSCIENCES INC.-2020NBI00708

PATIENT
  Age: 52 Year
  Sex: Female

DRUGS (1)
  1. INGREZZA [Suspect]
     Active Substance: VALBENAZINE
     Indication: TARDIVE DYSKINESIA
     Route: 048
     Dates: start: 20190613

REACTIONS (9)
  - Neurological symptom [Unknown]
  - Blood pressure increased [Unknown]
  - Dyspnoea [Unknown]
  - Depression [Unknown]
  - Hyponatraemia [Unknown]
  - Foot fracture [Unknown]
  - Post procedural contusion [Unknown]
  - Swelling [Unknown]
  - Procedural pain [Unknown]

NARRATIVE: CASE EVENT DATE: 20190926
